FAERS Safety Report 17304720 (Version 1)
Quarter: 2020Q1

REPORT INFORMATION
  Report Type: Report from Study
  Country: None (occurrence: ES)
  Receive Date: 20200122
  Receipt Date: 20200122
  Transmission Date: 20200409
  Serious: Yes (Other)
  Sender: FDA-Public Use
  Company Number: ES-ABBVIE-19K-144-3213077-00

PATIENT
  Age: 73 Year
  Sex: Female
  Weight: 55 kg

DRUGS (1)
  1. DUODOPA [Suspect]
     Active Substance: CARBIDOPA\LEVODOPA
     Indication: PARKINSON^S DISEASE
     Dosage: MORNING DOSE 7ML,?CD: 2.1, E D 2 OCCASIONAL,?TOTAL 40.6ML (812 MG)?DAILY INFUSION 16H
     Route: 050
     Dates: start: 20190313, end: 20200115

REACTIONS (10)
  - Abdominal pain [Not Recovered/Not Resolved]
  - Fistula [Recovering/Resolving]
  - Vomiting [Recovered/Resolved]
  - Constipation [Not Recovered/Not Resolved]
  - Abdominal discomfort [Unknown]
  - Embedded device [Recovered/Resolved]
  - Decreased appetite [Not Recovered/Not Resolved]
  - Device dislocation [Unknown]
  - Expired product administered [Unknown]
  - Diarrhoea [Recovered/Resolved]

NARRATIVE: CASE EVENT DATE: 2019
